FAERS Safety Report 9395666 (Version 1)
Quarter: 2013Q3

REPORT INFORMATION
  Report Type: Spontaneous
  Country: US (occurrence: US)
  Receive Date: 20130711
  Receipt Date: 20130711
  Transmission Date: 20140515
  Serious: No
  Sender: FDA-Public Use
  Company Number: US-009507513-1307USA005310

PATIENT
  Age: 5 Year
  Sex: Female
  Weight: 22.68 kg

DRUGS (2)
  1. CLARITIN CHEWABLE TABLETS [Suspect]
     Indication: UPPER-AIRWAY COUGH SYNDROME
     Dosage: 10 MG, QD
     Route: 048
     Dates: start: 201306
  2. CLARITIN CHEWABLE TABLETS [Suspect]
     Dosage: 10 MG, BID
     Route: 048
     Dates: start: 20130630

REACTIONS (2)
  - Overdose [Unknown]
  - Off label use [Unknown]
